FAERS Safety Report 19735545 (Version 4)
Quarter: 2023Q1

REPORT INFORMATION
  Report Type: Spontaneous
  Country: US (occurrence: US)
  Receive Date: 20210823
  Receipt Date: 20230106
  Transmission Date: 20230417
  Serious: Yes (Other)
  Sender: FDA-Public Use
  Company Number: US-PFIZER INC-2021670159

PATIENT
  Age: 62 Year
  Sex: Female
  Weight: 72.57 kg

DRUGS (9)
  1. XELJANZ XR [Suspect]
     Active Substance: TOFACITINIB CITRATE
     Indication: Psoriatic arthropathy
     Dosage: 11 MG, DAILY
     Route: 048
     Dates: start: 20210329
  2. METHOCARBAMOL [Suspect]
     Active Substance: METHOCARBAMOL
     Indication: Phantom limb syndrome
     Dosage: 750 MG, AS NEEDED [750MG TWICE A DAY AS NEEDED BY MOUTH]
     Route: 048
     Dates: start: 202105
  3. METHOCARBAMOL [Suspect]
     Active Substance: METHOCARBAMOL
     Indication: Nerve compression
  4. QUETIAPINE [Suspect]
     Active Substance: QUETIAPINE
     Indication: Post-traumatic stress disorder
     Dosage: 150 MG, 1X/DAY [AT BEDTIME]
     Route: 048
     Dates: start: 20161209
  5. QUETIAPINE [Suspect]
     Active Substance: QUETIAPINE
     Indication: Bipolar disorder
  6. PLAQUENIL [Concomitant]
     Active Substance: HYDROXYCHLOROQUINE SULFATE
     Indication: Inflammation
     Dosage: UNK
     Dates: start: 19981017
  7. PLAQUENIL [Concomitant]
     Active Substance: HYDROXYCHLOROQUINE SULFATE
     Dosage: UNK
     Dates: start: 20160428
  8. PROLIA [Concomitant]
     Active Substance: DENOSUMAB
     Dosage: UNK, CYCLIC [INJECTED EVERY 6 MONTHS IN HER SPINE]
     Route: 037
  9. ORENCIA [Concomitant]
     Active Substance: ABATACEPT
     Dosage: UNK

REACTIONS (5)
  - Dental operation [Unknown]
  - Oropharyngeal pain [Unknown]
  - Productive cough [Unknown]
  - Rhinorrhoea [Unknown]
  - Toothache [Unknown]

NARRATIVE: CASE EVENT DATE: 20210406
